FAERS Safety Report 7002036-3 (Version None)
Quarter: 2010Q3

REPORT INFORMATION
  Report Type: 
  Country: None (occurrence: None)
  Receive Date: 20100920
  Receipt Date: 20100909
  Transmission Date: 20110219
  Serious: Yes (Hospitalization)
  Sender: FDA-Public Use
  Company Number: US-JNJFOC-20100903859

PATIENT
  Sex: Female
  Weight: 52.89 kg

DRUGS (8)
  1. REMICADE [Suspect]
     Indication: INFLAMMATORY BOWEL DISEASE
     Route: 042
  2. TPN [Concomitant]
  3. SENOKOT [Concomitant]
  4. DULCOLAX [Concomitant]
  5. AMITIZA [Concomitant]
  6. PEPCID [Concomitant]
  7. ERYTHROMYCIN [Concomitant]
  8. 5-ASA [Concomitant]
     Indication: INFLAMMATORY BOWEL DISEASE
     Route: 048

REACTIONS (1)
  - IRRITABLE BOWEL SYNDROME [None]
